FAERS Safety Report 20018617 (Version 1)
Quarter: 2021Q4

REPORT INFORMATION
  Report Type: Spontaneous
  Country: FR (occurrence: FR)
  Receive Date: 20211101
  Receipt Date: 20211101
  Transmission Date: 20220303
  Serious: Yes (Death)
  Sender: FDA-Public Use
  Company Number: FR-ORGANON-O2110FRA002823

PATIENT
  Age: 83 Year
  Sex: Female

DRUGS (5)
  1. MIRTAZAPINE [Suspect]
     Active Substance: MIRTAZAPINE
     Indication: Poisoning
     Dosage: UNK
     Route: 048
  2. CYAMEMAZINE [Suspect]
     Active Substance: CYAMEMAZINE
     Indication: Poisoning
     Dosage: UNK
  3. LOXAPINE [Suspect]
     Active Substance: LOXAPINE
     Indication: Poisoning
     Dosage: UNK
  4. AMOXAPINE [Suspect]
     Active Substance: AMOXAPINE
     Indication: Poisoning
     Dosage: UNK
  5. TIAPRIDE HYDROCHLORIDE [Suspect]
     Active Substance: TIAPRIDE HYDROCHLORIDE
     Indication: Poisoning
     Dosage: UNK

REACTIONS (2)
  - Toxicity to various agents [Fatal]
  - Off label use [Unknown]
